FAERS Safety Report 7017551-6 (Version None)
Quarter: 2010Q3

REPORT INFORMATION
  Report Type: 
  Country: None (occurrence: None)
  Receive Date: 20100928
  Receipt Date: 20091207
  Transmission Date: 20110219
  Serious: No
  Sender: FDA-Public Use
  Company Number: US-MYLANLABS-2009S1019182

PATIENT
  Age: 65 Year
  Sex: Female
  Weight: 65.77 kg

DRUGS (7)
  1. SPIRONOLACTONE TABLETS, USP [Suspect]
     Indication: BLOOD PRESSURE INCREASED
     Route: 048
     Dates: start: 20091005, end: 20091015
  2. RED YEAST RICE [Concomitant]
  3. CALCIUM WITH VITAMIN D [Concomitant]
     Dosage: 2 VIACTIV CALCIUM CHEWS DAILY
     Route: 048
  4. NIACIN [Concomitant]
  5. M.V.I. [Concomitant]
     Dosage: 1 KIRKLAND MATURE MULTI-VITAMIN QD
  6. FISH OIL [Concomitant]
  7. ASPIRIN [Concomitant]
     Dosage: 1 BABY ASA QD

REACTIONS (2)
  - FATIGUE [None]
  - HYPOTENSION [None]
